FAERS Safety Report 12380774 (Version 1)
Quarter: 2016Q2

REPORT INFORMATION
  Report Type: Spontaneous
  Country: US (occurrence: US)
  Receive Date: 20160518
  Receipt Date: 20160518
  Transmission Date: 20160815
  Serious: Yes (Hospitalization, Other)
  Sender: FDA-Public Use
  Company Number: ADR-2015-01140

PATIENT
  Age: 88 Year
  Sex: Male

DRUGS (15)
  1. VARIOUS VITAMINS [Suspect]
     Active Substance: VITAMINS
  2. DITROPAN [Suspect]
     Active Substance: OXYBUTYNIN CHLORIDE
  3. NEURONTIN [Suspect]
     Active Substance: GABAPENTIN
  4. TRILEPTAL [Suspect]
     Active Substance: OXCARBAZEPINE
  5. NORVASC [Suspect]
     Active Substance: AMLODIPINE BESYLATE
  6. CARDURA [Suspect]
     Active Substance: DOXAZOSIN MESYLATE
  7. PRESERVISION [Suspect]
     Active Substance: MINERALS\VITAMINS
  8. XALATAN [Suspect]
     Active Substance: LATANOPROST
  9. K-DUR [Suspect]
     Active Substance: POTASSIUM CHLORIDE
  10. BACLOFEN. [Suspect]
     Active Substance: BACLOFEN
     Dosage: 45.07 MCG/DAY
     Route: 037
  11. EXFORGE [Suspect]
     Active Substance: AMLODIPINE BESYLATE\VALSARTAN
  12. SYNTHROID [Suspect]
     Active Substance: LEVOTHYROXINE SODIUM
  13. PATANOL [Suspect]
     Active Substance: OLOPATADINE HYDROCHLORIDE
  14. ALPHAGAN P [Suspect]
     Active Substance: BRIMONIDINE TARTRATE
  15. LOPRESSOR [Suspect]
     Active Substance: METOPROLOL TARTRATE

REACTIONS (3)
  - Muscle spasticity [Recovered/Resolved]
  - Muscle rigidity [Recovered/Resolved]
  - Cerebrovascular accident [Recovered/Resolved]

NARRATIVE: CASE EVENT DATE: 20141215
